FAERS Safety Report 12206557 (Version 1)
Quarter: 2016Q1

REPORT INFORMATION
  Report Type: Spontaneous
  Country: US (occurrence: None)
  Receive Date: 20160323
  Receipt Date: 20160323
  Transmission Date: 20160526
  Serious: Yes (Life-Threatening, Hospitalization)
  Sender: FDA-Public Use
  Company Number: None

PATIENT
  Age: 70 Year
  Sex: Female
  Weight: 95.26 kg

DRUGS (17)
  1. MAGNESIUM [Concomitant]
     Active Substance: MAGNESIUM
  2. LOMOTIL [Concomitant]
     Active Substance: ATROPINE SULFATE\DIPHENOXYLATE HYDROCHLORIDE
  3. ONE-A-DAY NOS [Concomitant]
     Active Substance: MINERALS\VITAMINS
  4. VIT. D [Concomitant]
  5. TYLENOL #4 [Concomitant]
  6. PAROXETINE [Concomitant]
     Active Substance: PAROXETINE\PAROXETINE HYDROCHLORIDE
  7. SPIRONOLACTONE. [Concomitant]
     Active Substance: SPIRONOLACTONE
  8. NEXUS [Concomitant]
  9. IMODIUM [Concomitant]
     Active Substance: LOPERAMIDE HYDROCHLORIDE
  10. GAS-X [Concomitant]
     Active Substance: DIMETHICONE
  11. XANAX [Concomitant]
     Active Substance: ALPRAZOLAM
  12. QUESTRAN [Concomitant]
     Active Substance: CHOLESTYRAMINE
  13. AMLODIPINE BESYLATE. [Concomitant]
     Active Substance: AMLODIPINE BESYLATE
  14. COCONUT OIL [Concomitant]
     Active Substance: COCONUT OIL
  15. GABAPENTIN 300MG NORTH-16714066202 [Suspect]
     Active Substance: GABAPENTIN
     Indication: PAIN IN EXTREMITY
     Dosage: 1 CAPSULE T NIGT  ONCE DAILY  TAKEN BY MOUTH
     Route: 048
     Dates: start: 20151006, end: 20151105
  16. LIPITOR [Concomitant]
     Active Substance: ATORVASTATIN CALCIUM
  17. LISINOPRIL. [Concomitant]
     Active Substance: LISINOPRIL

REACTIONS (9)
  - Anxiety [None]
  - Confusional state [None]
  - Hepatic failure [None]
  - Renal failure [None]
  - Tremor [None]
  - Dementia [None]
  - Hallucination, visual [None]
  - Apparent death [None]
  - Fear [None]

NARRATIVE: CASE EVENT DATE: 20151104
